FAERS Safety Report 9016430 (Version 1)
Quarter: 2013Q1

REPORT INFORMATION
  Report Type: Spontaneous
  Country: FR (occurrence: FR)
  Receive Date: 20130116
  Receipt Date: 20130116
  Transmission Date: 20140127
  Serious: Yes (Hospitalization)
  Sender: FDA-Public Use
  Company Number: FR-GLAXOSMITHKLINE-B0856798A

PATIENT
  Age: 61 Year
  Sex: Male

DRUGS (3)
  1. ZELITREX [Suspect]
     Indication: PRODUCT USED FOR UNKNOWN INDICATION
     Dosage: 1000MG PER DAY
     Route: 048
     Dates: start: 20111124, end: 20120229
  2. ZINNAT [Concomitant]
     Route: 065
     Dates: start: 20111124, end: 20111215
  3. TIORFAN [Concomitant]
     Route: 065
     Dates: start: 20111124, end: 20111215

REACTIONS (2)
  - Pancytopenia [Recovered/Resolved]
  - Pyrexia [Recovered/Resolved]
